FAERS Safety Report 19213356 (Version 1)
Quarter: 2021Q2

REPORT INFORMATION
  Report Type: Spontaneous
  Country: GB (occurrence: GB)
  Receive Date: 20210504
  Receipt Date: 20210504
  Transmission Date: 20210717
  Serious: Yes (Hospitalization, Other)
  Sender: FDA-Public Use
  Company Number: GB-BEH-2021131170

PATIENT
  Sex: Female

DRUGS (1)
  1. ANTI?D IMMUNOGLOBULIN (INN) [Suspect]
     Active Substance: HUMAN RHO(D) IMMUNE GLOBULIN
     Dosage: UNK
     Route: 065
     Dates: start: 2021

REACTIONS (4)
  - Thrombocytopenia [Not Recovered/Not Resolved]
  - Platelet count decreased [Not Recovered/Not Resolved]
  - Haemorrhage [Recovered/Resolved]
  - Contusion [Recovered/Resolved]
